FAERS Safety Report 4653575-1 (Version None)
Quarter: 2005Q2

REPORT INFORMATION
  Report Type: 
  Country: None (occurrence: None)
  Receive Date: 20050504
  Receipt Date: 20050425
  Transmission Date: 20051028
  Serious: Yes (Hospitalization)
  Sender: FDA-Public Use
  Company Number: GXKR2005BR00957

PATIENT
  Age: 41 Year
  Sex: Male

DRUGS (1)
  1. AMOXICILLIN [Suspect]
     Indication: PROPHYLAXIS
     Dates: end: 19990101

REACTIONS (5)
  - DRUG HYPERSENSITIVITY [None]
  - ENDOCARDITIS BACTERIAL [None]
  - ERYTHEMA [None]
  - PRURITUS [None]
  - PYREXIA [None]
